FAERS Safety Report 13405772 (Version 2)
Quarter: 2017Q2

REPORT INFORMATION
  Report Type: Report from Study
  Country: MX (occurrence: MX)
  Receive Date: 20170405
  Receipt Date: 20170601
  Transmission Date: 20170830
  Serious: Yes (Other)
  Sender: FDA-Public Use
  Company Number: PHHY2016MX081627

PATIENT
  Sex: Female

DRUGS (8)
  1. RITALINE [Suspect]
     Active Substance: METHYLPHENIDATE HYDROCHLORIDE
     Indication: DECREASED ACTIVITY
     Dosage: 10 MG, (1 YEAR AGO APPROXIMATELY)
     Route: 065
  2. RITALINE [Suspect]
     Active Substance: METHYLPHENIDATE HYDROCHLORIDE
     Dosage: 1 DF, QD
     Route: 065
     Dates: start: 20160603
  3. RITALINE [Suspect]
     Active Substance: METHYLPHENIDATE HYDROCHLORIDE
     Dosage: 0.5 DF, UNK
     Route: 065
  4. RITALINE [Suspect]
     Active Substance: METHYLPHENIDATE HYDROCHLORIDE
     Dosage: 1 DF, QD, (SINCE APPROXIMATELY 1 YEAR)
     Route: 065
  5. RITALINE [Suspect]
     Active Substance: METHYLPHENIDATE HYDROCHLORIDE
     Dosage: 1 DF, QD
     Route: 065
  6. RITALINE [Suspect]
     Active Substance: METHYLPHENIDATE HYDROCHLORIDE
     Dosage: 0.25 DF (10 MG), UNK
     Route: 065
  7. NOOTROPIL [Concomitant]
     Active Substance: PIRACETAM
     Indication: PRODUCT USED FOR UNKNOWN INDICATION
     Route: 065
  8. RITALINE [Suspect]
     Active Substance: METHYLPHENIDATE HYDROCHLORIDE
     Dosage: 0.5 DF (10 MG), QD (8 MONTHS AGO APPROXIMATELY)
     Route: 065

REACTIONS (12)
  - Brain injury [Unknown]
  - Blood pressure systolic increased [Unknown]
  - Syncope [Unknown]
  - Wrong technique in product usage process [Not Recovered/Not Resolved]
  - Drug prescribing error [Not Recovered/Not Resolved]
  - Discomfort [Unknown]
  - Abdominal pain upper [Unknown]
  - Product use in unapproved indication [Recovered/Resolved]
  - Speech disorder [Not Recovered/Not Resolved]
  - Insomnia [Recovering/Resolving]
  - Blood pressure diastolic decreased [Unknown]
  - Weight gain poor [Unknown]
